FAERS Safety Report 4306976-5 (Version None)
Quarter: 2004Q1

REPORT INFORMATION
  Report Type: 
  Country: None (occurrence: None)
  Receive Date: 20040225
  Receipt Date: 20040210
  Transmission Date: 20041129
  Serious: Yes (Hospitalization)
  Sender: FDA-Public Use
  Company Number: CERZ-10518

PATIENT
  Age: 12 Month
  Sex: Male
  Weight: 6.6 kg

DRUGS (1)
  1. CEREZYME [Suspect]
     Indication: GAUCHER'S DISEASE
     Dosage: 90 U/KG Q2WKS IV
     Route: 042
     Dates: start: 20030902

REACTIONS (5)
  - ANGIOTENSIN CONVERTING ENZYME DECREASED [None]
  - BLOOD ACID PHOSPHATASE DECREASED [None]
  - CONDITION AGGRAVATED [None]
  - HEPATOSPLENOMEGALY [None]
  - INTERSTITIAL LUNG DISEASE [None]
